FAERS Safety Report 8274072-0 (Version None)
Quarter: 2012Q2

REPORT INFORMATION
  Report Type: 
  Country: None (occurrence: None)
  Receive Date: 20120411
  Receipt Date: 20120409
  Transmission Date: 20120825
  Serious: Yes (Hospitalization)
  Sender: FDA-Public Use
  Company Number: US-GILEAD-2012-0053344

PATIENT
  Sex: Female

DRUGS (2)
  1. LETAIRIS [Suspect]
     Indication: PRODUCT USED FOR UNKNOWN INDICATION
     Dosage: 5 MG, UNK
     Route: 048
     Dates: start: 20110511, end: 20120218
  2. COUMADIN [Concomitant]

REACTIONS (3)
  - BLOOD CULTURE POSITIVE [None]
  - GASTROINTESTINAL INFECTION [None]
  - ANTICOAGULATION DRUG LEVEL ABOVE THERAPEUTIC [None]
